FAERS Safety Report 4360594-1 (Version None)
Quarter: 2004Q2

REPORT INFORMATION
  Report Type: 
  Country: None (occurrence: None)
  Receive Date: 20040519
  Receipt Date: 20040406
  Transmission Date: 20050107
  Serious: Yes (Other)
  Sender: FDA-Public Use
  Company Number: PHBS2004BR04703

PATIENT
  Age: 66 Year
  Sex: Female
  Weight: 80 kg

DRUGS (11)
  1. ZOMETA [Suspect]
     Indication: METASTASES TO BONE
     Dosage: 4 MG MONTHLY
     Route: 042
     Dates: start: 20020523, end: 20031119
  2. HORMONES [Concomitant]
     Route: 065
  3. CHEMOTHERAPEUTICS,OTHER [Concomitant]
     Route: 065
  4. AREDIA [Suspect]
     Indication: METASTASES TO BONE
     Dosage: 90 MG MONTHLY
     Route: 042
     Dates: start: 20031101, end: 20040401
  5. CORTICOSTEROIDS [Concomitant]
     Route: 065
  6. LETROZOLE [Concomitant]
     Indication: BREAST CANCER
     Dosage: 2.5 MG/D
     Route: 065
     Dates: start: 20020523, end: 20030401
  7. PACLITAXEL [Concomitant]
     Dosage: 80 MG/M2 WEEKLY
     Route: 065
     Dates: start: 20030501, end: 20030701
  8. DOCETAXEL [Concomitant]
     Dosage: 75 MG/M2 MONTHLY
     Route: 065
     Dates: start: 20030701, end: 20030801
  9. MITOMYCIN [Concomitant]
     Dosage: 10 MG/M2 MONTHLY
     Route: 065
     Dates: start: 20030801, end: 20031201
  10. GEMCITABINE [Concomitant]
     Dosage: 1000 MG/M2 WEEKLY
     Route: 065
     Dates: start: 20031201
  11. TAMOXIFEN CITRATE [Concomitant]
     Indication: BREAST CANCER
     Dosage: 20 MG/D
     Route: 065
     Dates: start: 20030401, end: 20030501

REACTIONS (5)
  - OSTEOMYELITIS [None]
  - OSTEONECROSIS [None]
  - RENAL FAILURE [None]
  - STOMATITIS [None]
  - SURGERY [None]
